FAERS Safety Report 12573303 (Version 1)
Quarter: 2016Q3

REPORT INFORMATION
  Report Type: Spontaneous
  Country: SE (occurrence: SE)
  Receive Date: 20160720
  Receipt Date: 20160720
  Transmission Date: 20161109
  Serious: Yes (Other)
  Sender: FDA-Public Use
  Company Number: SE-TEVA-674612ISR

PATIENT
  Age: 51 Year
  Sex: Male

DRUGS (1)
  1. MODIODAL [Suspect]
     Active Substance: MODAFINIL

REACTIONS (2)
  - Abdominal pain [Not Recovered/Not Resolved]
  - Liver function test increased [Not Recovered/Not Resolved]
